FAERS Safety Report 16484306 (Version 1)
Quarter: 2019Q2

REPORT INFORMATION
  Report Type: Spontaneous
  Country: US (occurrence: US)
  Receive Date: 20190627
  Receipt Date: 20190627
  Transmission Date: 20190711
  Serious: No
  Sender: FDA-Public Use
  Company Number: US-GALDERMA-US19021988

PATIENT
  Age: 34 Year
  Sex: Female

DRUGS (4)
  1. PROACTIV?MD DEEP CLEANSING FACE?WASH [Concomitant]
     Indication: ACNE
     Route: 061
     Dates: start: 20190220, end: 20190330
  2. PROACTIV MD ADAPALENE ACNE TREATMENT [Suspect]
     Active Substance: ADAPALENE
     Indication: ACNE
     Dosage: 0.1%
     Route: 061
     Dates: start: 20190220, end: 20190330
  3. MULTIVITAMIN [Concomitant]
     Active Substance: VITAMINS
  4. PROACTIV MD DAILY OIL CONTROL SPF 30 [Suspect]
     Active Substance: AVOBENZONE\OCTISALATE\OCTOCRYLENE
     Indication: ACNE
     Route: 061
     Dates: start: 20190220, end: 20190330

REACTIONS (2)
  - Acne [Recovering/Resolving]
  - Erythema [Recovering/Resolving]

NARRATIVE: CASE EVENT DATE: 20190227
